FAERS Safety Report 9678510 (Version 1)
Quarter: 2013Q4

REPORT INFORMATION
  Report Type: Spontaneous
  Country: JP (occurrence: JP)
  Receive Date: 20131108
  Receipt Date: 20131108
  Transmission Date: 20140711
  Serious: Yes (Hospitalization)
  Sender: FDA-Public Use
  Company Number: JP-ASTRAZENECA-2013SE80731

PATIENT
  Sex: 0

DRUGS (4)
  1. DIPRIVAN [Suspect]
     Indication: INDUCTION OF ANAESTHESIA
     Route: 042
  2. DIPRIVAN [Suspect]
     Indication: MAINTENANCE OF ANAESTHESIA
     Route: 042
  3. REMIFENTANIL [Suspect]
     Indication: INDUCTION OF ANAESTHESIA
  4. REMIFENTANIL [Suspect]
     Indication: MAINTENANCE OF ANAESTHESIA

REACTIONS (1)
  - Delayed recovery from anaesthesia [Unknown]
